FAERS Safety Report 19742921 (Version 2)
Quarter: 2021Q3

REPORT INFORMATION
  Report Type: Spontaneous
  Country: CA (occurrence: CA)
  Receive Date: 20210824
  Receipt Date: 20210923
  Transmission Date: 20211014
  Serious: Yes (Hospitalization, Other)
  Sender: FDA-Public Use
  Company Number: CA-UCBSA-2021038797

PATIENT
  Age: 26 Year
  Sex: Male

DRUGS (13)
  1. VALPROIC ACID. [Suspect]
     Active Substance: VALPROIC ACID
     Indication: SEIZURE
     Dosage: 2000 MILLIGRAM, ONCE DAILY (QD)
  2. LACOSAMIDE. [Suspect]
     Active Substance: LACOSAMIDE
     Indication: SEIZURE
     Dosage: 400 MILLIGRAM, ONCE DAILY (QD)
  3. CLONAZEPAM. [Suspect]
     Active Substance: CLONAZEPAM
     Indication: SEIZURE
  4. VITAMIN B6 [Concomitant]
     Active Substance: PYRIDOXINE HYDROCHLORIDE
     Indication: PRODUCT USED FOR UNKNOWN INDICATION
  5. PERAMPANEL [Suspect]
     Active Substance: PERAMPANEL
     Indication: SEIZURE
     Dosage: 4 MILLIGRAM, ONCE DAILY (QD)
  6. PHENYTOIN. [Suspect]
     Active Substance: PHENYTOIN
     Indication: SEIZURE
  7. VIGABATRIN. [Suspect]
     Active Substance: VIGABATRIN
     Indication: SEIZURE
     Dosage: UNK
  8. LAMOTRIGINE. [Suspect]
     Active Substance: LAMOTRIGINE
     Indication: SEIZURE
  9. QUETIAPINE FUMARATE. [Suspect]
     Active Substance: QUETIAPINE FUMARATE
     Indication: SEIZURE
     Dosage: UNK
  10. KEPPRA [Suspect]
     Active Substance: LEVETIRACETAM
     Indication: SEIZURE
     Dosage: UNK
  11. CARBAMAZEPINE. [Suspect]
     Active Substance: CARBAMAZEPINE
     Indication: SEIZURE
  12. CLOBAZAM. [Suspect]
     Active Substance: CLOBAZAM
     Indication: SEIZURE
  13. PHENOBARBITAL. [Suspect]
     Active Substance: PHENOBARBITAL
     Indication: SEIZURE

REACTIONS (11)
  - Epilepsy [Recovered/Resolved]
  - Drug ineffective [Unknown]
  - Gaze palsy [Recovered/Resolved]
  - Status epilepticus [Recovered/Resolved]
  - Anticonvulsant drug level above therapeutic [Recovered/Resolved]
  - Excessive eye blinking [Recovered/Resolved]
  - Posture abnormal [Recovered/Resolved]
  - Product use issue [Unknown]
  - Musculoskeletal stiffness [Recovered/Resolved]
  - Seizure [Recovered/Resolved]
  - Condition aggravated [Recovered/Resolved]
